FAERS Safety Report 8555588 (Version 4)
Quarter: 2012Q4

REPORT INFORMATION
  Report Type: 
  Country: SK (occurrence: SK)
  Receive Date: 20120510
  Receipt Date: 20120914
  Transmission Date: 20130627
  Serious: Yes (Other)
  Sender: FDA-Public Use
  Company Number: SK-AMGEN-SVKSP2012028107

PATIENT
  Sex: Female

DRUGS (1)
  1. PROLIA [Suspect]
     Indication: PRODUCT USED FOR UNKNOWN INDICATION
     Dosage: UNK
     Dates: start: 20111102

REACTIONS (25)
  - Erythema multiforme [Not Recovered/Not Resolved]
  - Visual impairment [Unknown]
  - Drug eruption [Not Recovered/Not Resolved]
  - Palpitations [Unknown]
  - Spinal pain [Unknown]
  - Arthralgia [Unknown]
  - Back pain [Unknown]
  - Musculoskeletal pain [Unknown]
  - Blood pressure fluctuation [Unknown]
  - Balance disorder [Unknown]
  - Dyspepsia [Unknown]
  - Muscle atrophy [Unknown]
  - Skin atrophy [Unknown]
  - Muscular weakness [Unknown]
  - Dry skin [Unknown]
  - Pigmentation disorder [Unknown]
  - Lipoatrophy [Unknown]
  - Chills [Unknown]
  - Angiodermatitis [Unknown]
  - Purpura [Unknown]
  - Varicophlebitis [Unknown]
  - Peripheral arterial occlusive disease [Unknown]
  - Venous insufficiency [Unknown]
  - Cellulitis [Not Recovered/Not Resolved]
  - Rash [Unknown]
